FAERS Safety Report 7424415-2 (Version None)
Quarter: 2011Q2

REPORT INFORMATION
  Report Type: 
  Country: None (occurrence: None)
  Receive Date: 20110419
  Receipt Date: 20110331
  Transmission Date: 20111010
  Serious: Yes (Hospitalization)
  Sender: FDA-Public Use
  Company Number: FR-PFIZER INC-FR-WYE-G06253510

PATIENT
  Age: 80 Year
  Sex: Female

DRUGS (12)
  1. ACETAMINOPHEN [Concomitant]
     Route: 065
  2. PREVISCAN [Concomitant]
     Route: 065
  3. TAZOCILLINE [Suspect]
     Dosage: UNKNOWN
     Route: 042
     Dates: start: 20100414, end: 20100424
  4. DALACINE [Suspect]
     Dosage: UNKNOWN
     Route: 048
     Dates: start: 20100414, end: 20100424
  5. UMULINE [Concomitant]
     Route: 065
  6. DIFFU K [Concomitant]
     Route: 065
  7. ALDACTONE [Concomitant]
     Route: 065
  8. SALBUTAMOL [Concomitant]
     Route: 065
  9. HEMIGOXINE NATIVELLE [Concomitant]
     Route: 065
  10. LASIX [Concomitant]
     Route: 065
  11. GENTAMICIN [Suspect]
     Dosage: UNKNOWN
     Route: 042
     Dates: start: 20100414, end: 20100416
  12. IPRATROPIUM BROMIDE [Concomitant]
     Route: 065

REACTIONS (2)
  - TOXIC SKIN ERUPTION [None]
  - RASH ERYTHEMATOUS [None]
